FAERS Safety Report 8502817-0 (Version None)
Quarter: 2012Q3

REPORT INFORMATION
  Report Type: 
  Country: None (occurrence: None)
  Receive Date: 20120711
  Receipt Date: 20120702
  Transmission Date: 20120928
  Serious: Yes (Other)
  Sender: FDA-Public Use
  Company Number: PL-PFIZER INC-2012163913

PATIENT

DRUGS (1)
  1. CORDARONE [Suspect]
     Dosage: UNK
     Route: 065

REACTIONS (1)
  - CARDIAC ARREST [None]
